FAERS Safety Report 9707777 (Version 1)
Quarter: 2013Q4

REPORT INFORMATION
  Report Type: Report from Study
  Country: US (occurrence: US)
  Receive Date: 20131125
  Receipt Date: 20131125
  Transmission Date: 20140711
  Serious: Yes (Hospitalization, Other)
  Sender: FDA-Public Use
  Company Number: US-ASTELLAS-2013US012347

PATIENT
  Age: 73 Year
  Sex: Male

DRUGS (2)
  1. ERLOTINIB TABLET [Suspect]
     Indication: HEPATOCELLULAR CARCINOMA
     Dosage: 150 MG, UID/QD
     Route: 048
     Dates: start: 20130530
  2. BEVACIZUMAB [Suspect]
     Indication: HEPATOCELLULAR CARCINOMA
     Dosage: 10 MG/KG, DAY 1 + 15 ONCE IN 28 DAYS
     Route: 042
     Dates: start: 20130530

REACTIONS (5)
  - Off label use [Unknown]
  - Hepatic haemorrhage [Unknown]
  - Oesophageal varices haemorrhage [Recovered/Resolved]
  - Pneumonia [Recovered/Resolved]
  - Hepatic encephalopathy [Unknown]
